FAERS Safety Report 11700263 (Version 1)
Quarter: 2015Q4

REPORT INFORMATION
  Report Type: Spontaneous
  Country: US (occurrence: US)
  Receive Date: 20151105
  Receipt Date: 20151105
  Transmission Date: 20160304
  Serious: No
  Sender: FDA-Public Use
  Company Number: US-PFIZER INC-2015369508

PATIENT
  Age: 63 Year
  Sex: Female

DRUGS (1)
  1. IBRANCE [Suspect]
     Active Substance: PALBOCICLIB
     Dosage: 125 MG, CYCLIC, ONCE DAILY (21 DAYS ON AND 7 DAYS OFF)
     Dates: start: 20151005

REACTIONS (5)
  - Dry skin [Unknown]
  - Hypoaesthesia [Unknown]
  - Pruritus [Unknown]
  - Paraesthesia [Unknown]
  - Erythema [Unknown]

NARRATIVE: CASE EVENT DATE: 2015
